FAERS Safety Report 22348524 (Version 2)
Quarter: 2023Q2

REPORT INFORMATION
  Report Type: Spontaneous
  Country: US (occurrence: US)
  Receive Date: 20230522
  Receipt Date: 20230616
  Transmission Date: 20230722
  Serious: No
  Sender: FDA-Public Use
  Company Number: US-BIOGEN-2023BI01206184

PATIENT
  Sex: Female

DRUGS (1)
  1. TECFIDERA [Suspect]
     Active Substance: DIMETHYL FUMARATE
     Indication: Multiple sclerosis
     Route: 050
     Dates: start: 20191007, end: 20191101

REACTIONS (5)
  - Dehydration [Unknown]
  - Flushing [Unknown]
  - Abdominal pain upper [Unknown]
  - Nausea [Unknown]
  - Hot flush [Unknown]
